FAERS Safety Report 11987982 (Version 18)
Quarter: 2020Q1

REPORT INFORMATION
  Report Type: Report from Study
  Country: MX (occurrence: MX)
  Receive Date: 20160202
  Receipt Date: 20200204
  Transmission Date: 20200409
  Serious: Yes (Hospitalization, Other)
  Sender: FDA-Public Use
  Company Number: MX-ROCHE-1551854

PATIENT
  Age: 59 Year
  Sex: Female
  Weight: 57 kg

DRUGS (11)
  1. ROACTEMRA [Suspect]
     Active Substance: TOCILIZUMAB
     Indication: RHEUMATOID ARTHRITIS
     Dosage: LAST DOSE: NOV/2015, APR/2018?MOST RECENT DOSE: 05/JUL/2018
     Route: 042
     Dates: start: 20150304
  2. VOLTAREN [Concomitant]
     Active Substance: DICLOFENAC SODIUM
     Route: 048
  3. ROACTEMRA [Suspect]
     Active Substance: TOCILIZUMAB
     Route: 058
     Dates: start: 20170831
  4. FOLIC ACID. [Concomitant]
     Active Substance: FOLIC ACID
     Indication: RHEUMATOID ARTHRITIS
     Dosage: 1 EVERY DAY EXCEPT THE DAY OF THE METOTREXATO
     Route: 048
  5. LYRICA [Concomitant]
     Active Substance: PREGABALIN
     Route: 048
  6. ROACTEMRA [Suspect]
     Active Substance: TOCILIZUMAB
     Indication: RHEUMATOID ARTHRITIS
     Dosage: EVERY FRIDAY?ALTERNATING IN BELLY AND LEGS, LATEST DOSE RECEIVE DON 03/JUN/2017
     Route: 058
     Dates: start: 20160415
  7. METHOTREXATE. [Concomitant]
     Active Substance: METHOTREXATE
     Route: 058
     Dates: start: 20170603
  8. LEVOTHYROXINE. [Concomitant]
     Active Substance: LEVOTHYROXINE
     Indication: HYPOTHYROIDISM
     Route: 048
  9. FLUOXETINE [Concomitant]
     Active Substance: FLUOXETINE HYDROCHLORIDE
     Indication: DEPRESSION
     Route: 048
  10. METHOTREXATE. [Concomitant]
     Active Substance: METHOTREXATE
     Indication: RHEUMATOID ARTHRITIS
     Route: 048
     Dates: end: 20170603
  11. VARTALON [Concomitant]

REACTIONS (33)
  - Arthralgia [Recovered/Resolved]
  - Arthralgia [Recovered/Resolved]
  - Blood lactate dehydrogenase increased [Recovered/Resolved]
  - Musculoskeletal stiffness [Recovered/Resolved]
  - Anxiety [Recovered/Resolved]
  - Weight increased [Recovering/Resolving]
  - Chondropathy [Not Recovered/Not Resolved]
  - Infection [Recovered/Resolved]
  - Musculoskeletal pain [Recovered/Resolved]
  - Muscle spasms [Recovered/Resolved]
  - Aspartate aminotransferase increased [Recovered/Resolved]
  - Arthralgia [Recovered/Resolved]
  - Varicose vein [Recovered/Resolved]
  - Neck pain [Recovered/Resolved]
  - Alanine aminotransferase increased [Recovered/Resolved]
  - Blood cholesterol increased [Recovering/Resolving]
  - Alanine aminotransferase increased [Recovered/Resolved]
  - Anxiety [Recovering/Resolving]
  - Muscle spasms [Recovered/Resolved]
  - Drug ineffective [Unknown]
  - Pain in extremity [Recovered/Resolved]
  - Varicose vein [Recovering/Resolving]
  - Cartilage injury [Not Recovered/Not Resolved]
  - Blood lactate dehydrogenase increased [Recovered/Resolved]
  - Arthralgia [Recovering/Resolving]
  - C-reactive protein increased [Recovered/Resolved]
  - Urinary tract infection [Recovered/Resolved]
  - Aspartate aminotransferase increased [Recovered/Resolved]
  - Blood triglycerides increased [Recovered/Resolved]
  - Shoulder operation [Not Recovered/Not Resolved]
  - Pain [Recovered/Resolved]
  - Application site bruise [Recovered/Resolved]
  - Blood cholesterol increased [Not Recovered/Not Resolved]

NARRATIVE: CASE EVENT DATE: 20150309
